FAERS Safety Report 4510485-8 (Version None)
Quarter: 2004Q4

REPORT INFORMATION
  Report Type: 
  Country: None (occurrence: None)
  Receive Date: 20041124
  Receipt Date: 20041110
  Transmission Date: 20050328
  Serious: Yes (Other)
  Sender: FDA-Public Use
  Company Number: TH-GLAXOSMITHKLINE-B0357627A

PATIENT
  Age: 50 Year
  Sex: Male
  Weight: 90 kg

DRUGS (3)
  1. ZEFFIX [Suspect]
  2. HEPSERA [Suspect]
  3. PEGASYS [Suspect]
     Dosage: 180MCG WEEKLY
     Dates: start: 20041028

REACTIONS (6)
  - DIPLOPIA [None]
  - FACIAL PALSY [None]
  - PARAESTHESIA [None]
  - PARALYSIS [None]
  - POLYNEUROPATHY [None]
  - TINNITUS [None]
